FAERS Safety Report 25936456 (Version 2)
Quarter: 2025Q4

REPORT INFORMATION
  Report Type: Report from Study
  Country: US (occurrence: None)
  Receive Date: 20251017
  Receipt Date: 20251215
  Transmission Date: 20260118
  Serious: Yes (Other)
  Sender: UCB
  Company Number: US-UCBSA-2025065019

PATIENT
  Age: 71 Year

DRUGS (1)
  1. BRIVARACETAM [Suspect]
     Active Substance: BRIVARACETAM
     Indication: Myoclonic epilepsy
     Dosage: 100 MILLIGRAM, 2X/DAY (BID)
     Route: 061

REACTIONS (6)
  - Pneumonia [Not Recovered/Not Resolved]
  - Peripheral swelling [Unknown]
  - Product availability issue [Unknown]
  - Therapy interrupted [Unknown]
  - Product use in unapproved indication [Unknown]
  - Product container issue [Unknown]
